FAERS Safety Report 6882221-1 (Version None)
Quarter: 2010Q3

REPORT INFORMATION
  Report Type: 
  Country: None (occurrence: None)
  Receive Date: 20100702
  Receipt Date: 20091214
  Transmission Date: 20110219
  Serious: Yes (Other)
  Sender: FDA-Public Use
  Company Number: 2009312690

PATIENT
  Age: 83 Year
  Sex: Female
  Weight: 61.2 kg

DRUGS (1)
  1. ZOLOFT [Suspect]
     Indication: EMOTIONAL DISORDER
     Dosage: ORAL
     Route: 048

REACTIONS (3)
  - ANAEMIA [None]
  - HAEMOGLOBIN DECREASED [None]
  - LABORATORY TEST ABNORMAL [None]
